FAERS Safety Report 19280937 (Version 2)
Quarter: 2021Q3

REPORT INFORMATION
  Report Type: Spontaneous
  Country: IT (occurrence: IT)
  Receive Date: 20210520
  Receipt Date: 20210701
  Transmission Date: 20211014
  Serious: No
  Sender: FDA-Public Use
  Company Number: IT-GILEAD-2021-0531367

PATIENT
  Age: 49 Year
  Sex: Male
  Weight: 80 kg

DRUGS (6)
  1. INHIXA [Concomitant]
     Active Substance: ENOXAPARIN SODIUM
  2. VEKLURY [Suspect]
     Active Substance: REMDESIVIR
     Indication: COVID-19 PNEUMONIA
     Dosage: 200 MG (CYCLICAL)
     Route: 042
     Dates: start: 20210509, end: 20210511
  3. PANTOPRAZOLE [Concomitant]
     Active Substance: PANTOPRAZOLE
  4. CARDIAZOL PARACODINA [Concomitant]
  5. PLAQUENIL [Concomitant]
     Active Substance: HYDROXYCHLOROQUINE SULFATE
  6. SOLDESAM [Concomitant]
     Active Substance: DEXAMETHASONE

REACTIONS (1)
  - Hepatic enzyme increased [Not Recovered/Not Resolved]

NARRATIVE: CASE EVENT DATE: 20210510
